FAERS Safety Report 5724217-9 (Version None)
Quarter: 2008Q2

REPORT INFORMATION
  Report Type: 
  Country: None (occurrence: None)
  Receive Date: 20080430
  Receipt Date: 20080425
  Transmission Date: 20081010
  Serious: Yes (Other)
  Sender: FDA-Public Use
  Company Number: US-MERCK-0804USA05452

PATIENT
  Age: 64 Year
  Sex: Female

DRUGS (6)
  1. SINGULAIR [Suspect]
     Indication: HYPERSENSITIVITY
     Route: 048
     Dates: end: 20080401
  2. NEXIUM [Concomitant]
     Route: 065
  3. HYZAAR [Concomitant]
     Route: 048
  4. TETRACYCLINE [Concomitant]
     Route: 065
  5. ATENOLOL [Concomitant]
     Route: 065
  6. POTASSIUM (UNSPECIFIED) [Concomitant]
     Route: 065

REACTIONS (2)
  - DEPRESSION [None]
  - SUICIDAL IDEATION [None]
